FAERS Safety Report 8574121-6 (Version None)
Quarter: 2012Q3

REPORT INFORMATION
  Report Type: 
  Country: None (occurrence: None)
  Receive Date: 20120806
  Receipt Date: 20120801
  Transmission Date: 20120928
  Serious: Yes (Other)
  Sender: FDA-Public Use
  Company Number: PHHY2010JP82545

PATIENT
  Sex: Female
  Weight: 62 kg

DRUGS (27)
  1. CLOZARIL [Suspect]
     Indication: SCHIZOPHRENIA
     Dosage: 12.5 MG, QD
     Route: 048
     Dates: start: 20101019, end: 20101019
  2. PURSENNID [Concomitant]
     Dosage: 12 MG, UNK
     Route: 048
  3. PERPHENAZINE [Concomitant]
  4. CLOCAPRAMINE HYDROCHLORIDE [Concomitant]
  5. CLOZARIL [Suspect]
     Dosage: 125 MG, QD
     Route: 048
     Dates: start: 20101108, end: 20101112
  6. CLOZARIL [Suspect]
     Dosage: 200 MG, QD
     Route: 048
     Dates: start: 20101119, end: 20101123
  7. SULPIRIDE [Concomitant]
  8. CLOZARIL [Suspect]
     Dosage: 50 MG, QD
     Route: 048
     Dates: start: 20101023, end: 20101101
  9. PIPAMPERONE [Concomitant]
  10. RISPERIDONE [Concomitant]
  11. XALATAN [Concomitant]
  12. CHLORPROMAZINE HCL [Concomitant]
     Route: 048
  13. THIORIDAZINE HCL [Concomitant]
  14. ARIPIPRAZOLE [Concomitant]
  15. CLOZARIL [Suspect]
     Dosage: 25 MG, QD
     Route: 048
     Dates: start: 20101020, end: 20101022
  16. CLOZARIL [Suspect]
     Dosage: 175 MG, QD
     Route: 048
     Dates: start: 20101116, end: 20101119
  17. CLOZARIL [Suspect]
     Dosage: 250 MG, QD
     Route: 048
     Dates: start: 20101123, end: 20101126
  18. SILECE [Concomitant]
  19. FLUOROMETHOLONE [Concomitant]
  20. CLOZARIL [Suspect]
     Dosage: 200 MG, QD
     Route: 048
     Dates: start: 20101127, end: 20101129
  21. OLANZAPINE [Concomitant]
  22. MAGMITT KENEI [Concomitant]
  23. CLOZARIL [Suspect]
     Dosage: 100 MG, QD
     Route: 048
     Dates: start: 20101105, end: 20101108
  24. CLOZARIL [Suspect]
     Dosage: 150 MG, QD
     Route: 048
     Dates: start: 20101112, end: 20101116
  25. HALOPERIDOL [Concomitant]
     Route: 048
  26. CLOZARIL [Suspect]
     Dosage: 75 MG, QD
     Route: 048
     Dates: start: 20101101, end: 20101105
  27. LEVOMEPROMAZINE HYDROCHLORIDE [Concomitant]

REACTIONS (9)
  - NEUTROPENIA [None]
  - WHITE BLOOD CELL COUNT DECREASED [None]
  - HEPATIC FUNCTION ABNORMAL [None]
  - PLATELET COUNT DECREASED [None]
  - ALANINE AMINOTRANSFERASE INCREASED [None]
  - BLOOD LACTATE DEHYDROGENASE INCREASED [None]
  - EOSINOPHIL COUNT INCREASED [None]
  - BLOOD PRESSURE DECREASED [None]
  - ASPARTATE AMINOTRANSFERASE INCREASED [None]
